FAERS Safety Report 24417600 (Version 2)
Quarter: 2024Q4

REPORT INFORMATION
  Report Type: Spontaneous
  Country: FR (occurrence: FR)
  Receive Date: 20241009
  Receipt Date: 20241107
  Transmission Date: 20250115
  Serious: Yes (Other)
  Sender: PFIZER
  Company Number: FR-ROCHE-10000092050

PATIENT
  Age: 67 Year
  Sex: Male
  Weight: 61.2 kg

DRUGS (30)
  1. BEVACIZUMAB [Suspect]
     Active Substance: BEVACIZUMAB
     Indication: Hepatocellular carcinoma
     Dosage: 925 MG, EVERY 3 WEEKS
     Route: 042
     Dates: start: 20240416
  2. BEVACIZUMAB [Suspect]
     Active Substance: BEVACIZUMAB
     Dosage: 912.5 MG
     Dates: start: 20240801
  3. TIRAGOLUMAB [Suspect]
     Active Substance: TIRAGOLUMAB
     Indication: Hepatocellular carcinoma
     Dosage: UNK, EVERY 3 WEEKS
     Route: 042
     Dates: start: 20240506
  4. TIRAGOLUMAB [Suspect]
     Active Substance: TIRAGOLUMAB
     Dosage: MOST RECENT DOSE OF STUDY DRUG PRIOR TO AE ON 01AUG2024
     Dates: start: 20240801
  5. ATEZOLIZUMAB [Suspect]
     Active Substance: ATEZOLIZUMAB
     Indication: Hepatocellular carcinoma
     Dosage: 1200 MG, EVERY 3 WEEKS
     Route: 042
     Dates: start: 20240416
  6. ATEZOLIZUMAB [Suspect]
     Active Substance: ATEZOLIZUMAB
     Dosage: MOST RECENT DOSE OF STUDY DRUG PRIOR TO AE WAS 01AUG2024
     Dates: start: 20240801
  7. CLAVULANIC ACID [Concomitant]
     Active Substance: CLAVULANIC ACID
     Indication: Cholecystitis
     Dosage: FREQ:.33 D;
     Route: 048
     Dates: start: 20240729, end: 20240803
  8. CEFTRIAXONE [Concomitant]
     Active Substance: CEFTRIAXONE
     Indication: Cholecystitis
     Dosage: 1 G, 1X/DAY
     Route: 042
     Dates: start: 20240719, end: 20240729
  9. OFLOXACIN [Concomitant]
     Active Substance: OFLOXACIN
     Indication: Otitis externa
     Dosage: FREQ:.5 D;
     Route: 014
     Dates: start: 20240820, end: 20240827
  10. LAMIVUDINE [Concomitant]
     Active Substance: LAMIVUDINE
     Dosage: 300 MG, 1X/DAY
     Route: 048
     Dates: start: 1998
  11. CICLOPIROX OLAMINE [Concomitant]
     Active Substance: CICLOPIROX OLAMINE
     Indication: Seborrhoeic dermatitis
     Dosage: 1 %, AS NEEDED
     Route: 061
  12. LANSOPRAZOLE [Concomitant]
     Active Substance: LANSOPRAZOLE
     Indication: Gastrooesophageal reflux disease
     Dosage: 30 MG, 1X/DAY
     Route: 048
     Dates: start: 20240723
  13. MONTMORILLONITE [Concomitant]
     Active Substance: MONTMORILLONITE
     Indication: Diarrhoea
     Dosage: 3 G, AS NEEDED
     Route: 048
     Dates: start: 20240731
  14. TRAMADOL [Concomitant]
     Active Substance: TRAMADOL
     Dosage: FREQ:.5 D;
     Route: 048
     Dates: start: 20240717, end: 20240803
  15. ANTIPYRINE [Concomitant]
     Active Substance: ANTIPYRINE
     Indication: Otitis externa
     Dosage: 4 G, AS NEEDED
     Route: 014
     Dates: start: 20240817, end: 20240820
  16. VITAMIN D NOS [Concomitant]
     Active Substance: CHOLECALCIFEROL\ERGOCALCIFEROL
     Indication: Vitamin D deficiency
     Dosage: 5000 IU, WEEKLY
     Route: 048
     Dates: start: 20240720, end: 20240917
  17. TRAMADOL HYDROCHLORIDE [Concomitant]
     Active Substance: TRAMADOL HYDROCHLORIDE
     Indication: Otitis externa
     Dosage: 50 MG, AS NEEDED
     Route: 048
     Dates: start: 20240717, end: 20240803
  18. TRAMADOL HYDROCHLORIDE [Concomitant]
     Active Substance: TRAMADOL HYDROCHLORIDE
     Dosage: UNK, AS NEEDED
     Route: 048
     Dates: start: 20240819, end: 20240827
  19. NEVIRAPINE [Concomitant]
     Active Substance: NEVIRAPINE
     Dosage: 400 MG, 1X/DAY
     Route: 048
     Dates: start: 1998, end: 20240729
  20. ROSUVASTATIN [Concomitant]
     Active Substance: ROSUVASTATIN
     Indication: Blood cholesterol increased
     Dosage: 10 MG, 1X/DAY
     Route: 048
     Dates: start: 202012
  21. LOPERAMIDE [Concomitant]
     Active Substance: LOPERAMIDE
     Indication: Diarrhoea
     Dosage: 2 MG, AS NEEDED
     Route: 048
     Dates: start: 20240801, end: 20240820
  22. LOPERAMIDE [Concomitant]
     Active Substance: LOPERAMIDE
     Dosage: 2 MG, AS NEEDED
     Route: 048
     Dates: start: 20241018
  23. METRONIDAZOLE [Concomitant]
     Active Substance: METRONIDAZOLE
     Indication: Cholecystitis
     Dosage: FREQ:.33 D;
     Route: 042
     Dates: start: 20240719, end: 20240729
  24. ABACAVIR [Concomitant]
     Active Substance: ABACAVIR
     Dosage: 600 MG, 1X/DAY
     Route: 048
     Dates: start: 1998, end: 20240729
  25. DOLUTEGRAVIR [Concomitant]
     Active Substance: DOLUTEGRAVIR
     Dosage: 50 MG, 1X/DAY
     Route: 048
     Dates: start: 20240730
  26. PAROXETINE [Concomitant]
     Active Substance: PAROXETINE
     Indication: Depression
     Dosage: 10 MG, 1X/DAY
     Route: 048
  27. ACETAMINOPHEN [Concomitant]
     Active Substance: ACETAMINOPHEN
     Indication: Otitis externa
     Dosage: 1 G, AS NEEDED
     Route: 048
     Dates: start: 20240819, end: 20240827
  28. AUGMENTIN [Concomitant]
     Active Substance: AMOXICILLIN\CLAVULANATE POTASSIUM
     Indication: Otitis externa
     Dosage: DRUG DOSE FIRST ADMINISTERED IS UN UNKNOWN
     Route: 048
     Dates: start: 20240819, end: 20240820
  29. AMOXICILLIN [Concomitant]
     Active Substance: AMOXICILLIN
     Indication: Cholecystitis
     Dosage: FREQ:.33 D;
     Route: 048
     Dates: start: 20240729, end: 20240803
  30. RACECADOTRIL [Concomitant]
     Active Substance: RACECADOTRIL
     Indication: Diarrhoea
     Dosage: 100 MG, AS NEEDED
     Route: 048
     Dates: start: 20241015

REACTIONS (1)
  - Adrenal insufficiency [Not Recovered/Not Resolved]

NARRATIVE: CASE EVENT DATE: 20240819
